FAERS Safety Report 10574041 (Version 2)
Quarter: 2014Q4

REPORT INFORMATION
  Report Type: Report from Study
  Country: FR (occurrence: FR)
  Receive Date: 20141110
  Receipt Date: 20141110
  Transmission Date: 20150529
  Serious: Yes (Other)
  Sender: FDA-Public Use
  Company Number: FR-GLAXOSMITHKLINE-B0792963A

PATIENT
  Age: 49 Year
  Sex: Male
  Weight: 95 kg

DRUGS (3)
  1. SPASFON [Concomitant]
     Active Substance: PHLOROGLUCINOL
     Indication: ABDOMINAL PAIN
     Dates: start: 20120203, end: 20120205
  2. PAZOPANIB [Suspect]
     Active Substance: PAZOPANIB
     Indication: DERMATOFIBROSARCOMA PROTUBERANS
     Route: 048
     Dates: start: 20120126, end: 20120309
  3. ADVIL [Concomitant]
     Active Substance: IBUPROFEN
     Indication: INFLUENZA
     Route: 048
     Dates: start: 20120206, end: 20120207

REACTIONS (2)
  - Blood bilirubin increased [Recovered/Resolved]
  - Alanine aminotransferase increased [Recovered/Resolved]

NARRATIVE: CASE EVENT DATE: 20120208
